FAERS Safety Report 4626229-5 (Version None)
Quarter: 2005Q2

REPORT INFORMATION
  Report Type: 
  Country: None (occurrence: None)
  Receive Date: 20050404
  Receipt Date: 20050310
  Transmission Date: 20051028
  Serious: Yes (Hospitalization, Other)
  Sender: FDA-Public Use
  Company Number: GB-BRISTOL-MYERS SQUIBB COMPANY-12892444

PATIENT
  Age: 48 Year
  Sex: Female
  Weight: 72 kg

DRUGS (4)
  1. CYCLOPHOSPHAMIDE [Suspect]
     Indication: BREAST CANCER
     Dates: start: 20041223, end: 20041223
  2. PACLITAXEL [Suspect]
     Indication: BREAST CANCER
     Dates: start: 20050203, end: 20050203
  3. EPIRUBICIN [Suspect]
     Indication: BREAST CANCER
     Dates: start: 20041223, end: 20041223
  4. STEROIDS [Concomitant]
     Indication: PREMEDICATION

REACTIONS (4)
  - INFECTION [None]
  - MAJOR DEPRESSION [None]
  - MOOD ALTERED [None]
  - PERIPHERAL SENSORY NEUROPATHY [None]
